FAERS Safety Report 4481273-6 (Version None)
Quarter: 2004Q4

REPORT INFORMATION
  Report Type: 
  Country: None (occurrence: None)
  Receive Date: 20041021
  Receipt Date: 20040929
  Transmission Date: 20050328
  Serious: Yes (Death)
  Sender: FDA-Public Use
  Company Number: JP-BRISTOL-MYERS SQUIBB COMPANY-12715058

PATIENT
  Age: 69 Year
  Sex: Male

DRUGS (18)
  1. TAXOL [Suspect]
     Indication: LUNG NEOPLASM MALIGNANT
     Route: 042
     Dates: start: 20040803, end: 20040803
  2. TAXOL [Suspect]
     Indication: MALIGNANT PLEURAL EFFUSION
     Route: 042
     Dates: start: 20040803, end: 20040803
  3. PARAPLATIN [Suspect]
     Indication: LUNG NEOPLASM MALIGNANT
     Route: 042
     Dates: start: 20040803, end: 20040803
  4. PARAPLATIN [Suspect]
     Indication: MALIGNANT PLEURAL EFFUSION
     Route: 042
     Dates: start: 20040803, end: 20040803
  5. DECADRON [Concomitant]
     Route: 041
     Dates: start: 20040803, end: 20040803
  6. ZANTAC [Concomitant]
     Route: 041
     Dates: start: 20040803, end: 20040803
  7. VENA [Concomitant]
     Route: 041
     Dates: start: 20040803, end: 20040803
  8. ZOFRAN [Concomitant]
     Route: 041
     Dates: start: 20040803, end: 20040803
  9. ALDACTONE [Concomitant]
     Route: 048
     Dates: start: 20040720
  10. BAYASPIRIN [Concomitant]
     Route: 048
     Dates: start: 20040720
  11. ACECOL [Concomitant]
     Route: 048
     Dates: start: 20040720
  12. TORSEMIDE [Concomitant]
     Route: 048
     Dates: start: 20040720
  13. LASIX [Concomitant]
     Route: 048
     Dates: start: 20040720
  14. LUVOX [Concomitant]
     Route: 048
     Dates: start: 20040720
  15. MEVALOTIN [Concomitant]
     Route: 048
     Dates: start: 20040720
  16. SIGMART [Concomitant]
     Route: 048
     Dates: start: 20040720
  17. SELOKEN [Concomitant]
     Route: 048
     Dates: start: 20040720
  18. MAGNESIUM OXIDE [Concomitant]
     Route: 048
     Dates: start: 20040720

REACTIONS (2)
  - NEUTROPENIC COLITIS [None]
  - STAPHYLOCOCCAL INFECTION [None]
